FAERS Safety Report 6216677-4 (Version None)
Quarter: 2009Q2

REPORT INFORMATION
  Report Type: 
  Country: None (occurrence: None)
  Receive Date: 20090604
  Receipt Date: 20090604
  Transmission Date: 20091009
  Serious: Yes (Hospitalization)
  Sender: FDA-Public Use
  Company Number: None

PATIENT
  Age: 26 Year
  Sex: Male
  Weight: 72.5755 kg

DRUGS (2)
  1. CHANTIX [Suspect]
     Indication: SMOKING CESSATION THERAPY
     Dosage: PO
     Route: 048
     Dates: start: 20090327
  2. VICOPROFEN [Concomitant]

REACTIONS (5)
  - CONFUSIONAL STATE [None]
  - EPISTAXIS [None]
  - JOINT SPRAIN [None]
  - LETHARGY [None]
  - SYNCOPE [None]
